FAERS Safety Report 21735895 (Version 1)
Quarter: 2022Q4

REPORT INFORMATION
  Report Type: Spontaneous
  Country: US (occurrence: US)
  Receive Date: 20221215
  Receipt Date: 20221215
  Transmission Date: 20230113
  Serious: Yes (Hospitalization)
  Sender: FDA-Public Use
  Company Number: US-ELI_LILLY_AND_COMPANY-US202212007338

PATIENT
  Age: 45 Year
  Sex: Female

DRUGS (4)
  1. HUMALOG [Suspect]
     Active Substance: INSULIN LISPRO
     Indication: Product used for unknown indication
     Dosage: UNK UNK, UNKNOWN
     Route: 065
  2. BASAGLAR [Suspect]
     Active Substance: INSULIN GLARGINE
     Indication: Type 1 diabetes mellitus
     Dosage: 50 U, UNKNOWN
     Route: 058
     Dates: start: 2015
  3. ELIQUIS [Concomitant]
     Active Substance: APIXABAN
     Indication: Thrombosis
  4. NOVOLOG [Concomitant]
     Active Substance: INSULIN ASPART
     Indication: Type 1 diabetes mellitus

REACTIONS (12)
  - Pulmonary thrombosis [Recovered/Resolved]
  - Thrombosis [Unknown]
  - Blood glucose increased [Recovered/Resolved]
  - White blood cell count increased [Recovered/Resolved]
  - Diabetic ketoacidosis [Recovered/Resolved]
  - Impaired gastric emptying [Recovered/Resolved]
  - Infection [Recovered/Resolved]
  - Blood pressure increased [Not Recovered/Not Resolved]
  - Impaired gastric emptying [Recovered/Resolved]
  - Vertigo [Not Recovered/Not Resolved]
  - Anxiety [Not Recovered/Not Resolved]
  - COVID-19 [Recovered/Resolved]

NARRATIVE: CASE EVENT DATE: 20220101
